FAERS Safety Report 24784525 (Version 3)
Quarter: 2025Q1

REPORT INFORMATION
  Report Type: Spontaneous
  Country: IT (occurrence: IT)
  Receive Date: 20241227
  Receipt Date: 20250116
  Transmission Date: 20250409
  Serious: Yes (Life-Threatening, Other)
  Sender: OTSUKA
  Company Number: None

PATIENT
  Age: 38 Year
  Sex: Male
  Weight: 65 kg

DRUGS (3)
  1. BREXPIPRAZOLE [Suspect]
     Active Substance: BREXPIPRAZOLE
     Indication: Schizophrenia
     Dosage: 4 MG, QD, DIE
     Route: 048
     Dates: start: 20240614, end: 20241015
  2. DIAZEPAM [Concomitant]
     Active Substance: DIAZEPAM
     Indication: Anxiety
     Route: 065
     Dates: start: 20210904, end: 20241015
  3. DEURSIL [Concomitant]
     Active Substance: URSODIOL
     Indication: Biliary dyspepsia
     Route: 048
     Dates: start: 20220122, end: 20241015

REACTIONS (3)
  - Acute kidney injury [Recovered/Resolved]
  - Rhabdomyolysis [Recovered/Resolved]
  - Rhabdomyolysis [Recovered/Resolved]

NARRATIVE: CASE EVENT DATE: 20241012
